FAERS Safety Report 10015597 (Version 2)
Quarter: 2014Q2

REPORT INFORMATION
  Report Type: Spontaneous
  Country: US (occurrence: US)
  Receive Date: 20140317
  Receipt Date: 20140509
  Transmission Date: 20141212
  Serious: Yes (Hospitalization, Other)
  Sender: FDA-Public Use
  Company Number: US-BAYER-2014-038200

PATIENT
  Age: 25 Year
  Sex: Female
  Weight: 120.18 kg

DRUGS (14)
  1. MIRENA [Suspect]
     Indication: CONTRACEPTION
     Dosage: 20 MCG/24HR, CONT
     Route: 015
     Dates: start: 20100223, end: 20110628
  2. MIRENA [Suspect]
     Indication: MENORRHAGIA
  3. LEVOTHYROXINE [Concomitant]
     Indication: AUTOIMMUNE THYROIDITIS
     Dosage: 125 MG, UNK
     Route: 048
  4. SYNTHROID [Concomitant]
     Indication: AUTOIMMUNE THYROIDITIS
  5. SPIRONOLACTONE [Concomitant]
     Dosage: 50 MG, UNK
     Route: 048
  6. GLUMETZA [Concomitant]
     Dosage: 2000 MG,A DAY
     Route: 048
  7. PERCOCET [Concomitant]
     Route: 048
  8. LORTAB [Concomitant]
  9. METFORMIN [Concomitant]
  10. WELLBUTRIN [Concomitant]
  11. PHENTERMINE [Concomitant]
  12. TERAZOL 7 [Concomitant]
  13. DIFLUCAN [Concomitant]
  14. CIPRO [Concomitant]

REACTIONS (5)
  - Uterine perforation [None]
  - Injury [None]
  - Pain [None]
  - Emotional distress [None]
  - Cyst [None]
